FAERS Safety Report 7267877-6 (Version None)
Quarter: 2011Q1

REPORT INFORMATION
  Report Type: 
  Country: None (occurrence: None)
  Receive Date: 20110201
  Receipt Date: 20110119
  Transmission Date: 20110831
  Serious: Yes (Hospitalization, Other)
  Sender: FDA-Public Use
  Company Number: US-ROCHE-755701

PATIENT
  Sex: Female
  Weight: 63.8 kg

DRUGS (6)
  1. BEVACIZUMAB [Suspect]
     Indication: OVARIAN CANCER
     Route: 042
     Dates: start: 20100526
  2. TRINOTECAN [Suspect]
     Indication: OVARIAN CANCER
     Route: 042
     Dates: start: 20100526
  3. KEPPRA [Concomitant]
  4. TRINOTECAN [Suspect]
     Route: 042
     Dates: start: 20100616
  5. COUMADIN [Concomitant]
     Dates: start: 20070101, end: 20100617
  6. ATIVAN [Concomitant]

REACTIONS (2)
  - NEUTROPENIA [None]
  - INTERNATIONAL NORMALISED RATIO INCREASED [None]
